FAERS Safety Report 21528754 (Version 4)
Quarter: 2023Q1

REPORT INFORMATION
  Report Type: Report from Study
  Country: US (occurrence: US)
  Receive Date: 20221031
  Receipt Date: 20230104
  Transmission Date: 20230418
  Serious: Yes (Death, Life-Threatening, Hospitalization)
  Sender: FDA-Public Use
  Company Number: US-SERVIER-S22011003

PATIENT

DRUGS (4)
  1. PEGASPARGASE [Suspect]
     Active Substance: PEGASPARGASE
     Indication: B precursor type acute leukaemia
     Dosage: 2000 IU/M2, D2 AND D22
     Route: 042
     Dates: start: 20220824, end: 20220922
  2. METHOTREXATE [Suspect]
     Active Substance: METHOTREXATE
     Indication: B precursor type acute leukaemia
     Dosage: 100 MG/M2, D1, D11, D21
     Route: 042
     Dates: start: 20220822, end: 20220927
  3. METHOTREXATE [Suspect]
     Active Substance: METHOTREXATE
     Dosage: 15 MG, D1, D31
     Route: 037
     Dates: start: 20220823, end: 20220922
  4. RITUXIMAB [Suspect]
     Active Substance: RITUXIMAB
     Indication: B precursor type acute leukaemia
     Dosage: 375 MG/M2, D1, D11
     Route: 042
     Dates: start: 20220822, end: 20220905

REACTIONS (5)
  - Sepsis [Fatal]
  - Deep vein thrombosis [Recovering/Resolving]
  - Hypoalbuminaemia [Recovering/Resolving]
  - Hyperbilirubinaemia [Recovering/Resolving]
  - Disseminated intravascular coagulation [Recovering/Resolving]

NARRATIVE: CASE EVENT DATE: 20220822
